FAERS Safety Report 17197806 (Version 1)
Quarter: 2019Q4

REPORT INFORMATION
  Report Type: Report from Study
  Country: US (occurrence: US)
  Receive Date: 20191224
  Receipt Date: 20191224
  Transmission Date: 20200122
  Serious: Yes (Hospitalization)
  Sender: FDA-Public Use
  Company Number: US-ACTELION-A-NJ2019-196104

PATIENT
  Sex: Female
  Weight: 46.26 kg

DRUGS (2)
  1. TYVASO [Concomitant]
     Active Substance: TREPROSTINIL
  2. OPSUMIT [Suspect]
     Active Substance: MACITENTAN
     Indication: PULMONARY HYPERTENSION
     Dosage: 10 MG, QD
     Route: 048

REACTIONS (7)
  - Pain [Recovering/Resolving]
  - Malaise [Unknown]
  - Pain in extremity [Recovering/Resolving]
  - Kidney infection [Unknown]
  - Nasal congestion [Unknown]
  - Muscle spasms [Recovering/Resolving]
  - Anaemia [Unknown]
